FAERS Safety Report 4584926-4 (Version None)
Quarter: 2005Q1

REPORT INFORMATION
  Report Type: 
  Country: None (occurrence: None)
  Receive Date: 20050217
  Receipt Date: 20041115
  Transmission Date: 20050727
  Serious: No
  Sender: FDA-Public Use
  Company Number: US-GLAXOSMITHKLINE-A0533946A

PATIENT
  Age: 34 Year
  Sex: Female

DRUGS (6)
  1. WELLBUTRIN XL [Suspect]
     Indication: DEPRESSION
     Dosage: 150MG PER DAY
     Route: 048
     Dates: start: 20021101
  2. CLONAZEPAM [Concomitant]
  3. FLONASE [Concomitant]
  4. RANITIDINE [Concomitant]
  5. ALLEGRA-D [Concomitant]
  6. HYDROCONE [Concomitant]

REACTIONS (5)
  - ALOPECIA [None]
  - CHEST PAIN [None]
  - DRY EYE [None]
  - GASTROOESOPHAGEAL REFLUX DISEASE [None]
  - STOMATITIS [None]
